FAERS Safety Report 18543343 (Version 1)
Quarter: 2020Q4

REPORT INFORMATION
  Report Type: Spontaneous
  Country: FR (occurrence: FR)
  Receive Date: 20201125
  Receipt Date: 20201125
  Transmission Date: 20210114
  Serious: Yes (Hospitalization, Other)
  Sender: FDA-Public Use
  Company Number: FR-PFIZER INC-2020458158

PATIENT
  Age: 80 Year
  Sex: Male

DRUGS (9)
  1. METHYLPREDNISOLONE. [Suspect]
     Active Substance: METHYLPREDNISOLONE
     Indication: COVID-19 TREATMENT
     Dosage: 32 MG, 1X/DAY
     Route: 042
     Dates: start: 20201009
  2. SUFENTANIL [Suspect]
     Active Substance: SUFENTANIL
     Indication: SEDATION
     Dosage: 5 UG
     Route: 042
     Dates: start: 20201011
  3. CYAMEMAZINE [Suspect]
     Active Substance: CYAMEMAZINE
     Indication: SEDATION
     Dosage: UNK
     Route: 048
     Dates: start: 202010
  4. MIDAZOLAM. [Suspect]
     Active Substance: MIDAZOLAM
     Indication: SEDATION
     Dosage: 5 MG
     Route: 042
     Dates: start: 20201011
  5. DIAMOX SEQUELS [Suspect]
     Active Substance: ACETAZOLAMIDE
     Dosage: 500 MG
     Route: 042
     Dates: start: 202010
  6. NORADRENALINE [NOREPINEPHRINE] [Suspect]
     Active Substance: NOREPINEPHRINE
     Indication: HAEMODYNAMIC INSTABILITY
     Dosage: UNK
     Route: 042
  7. CUBICIN [Suspect]
     Active Substance: DAPTOMYCIN
     Indication: STAPHYLOCOCCAL BACTERAEMIA
     Dosage: 1 G
     Route: 042
     Dates: start: 20201023, end: 20201028
  8. INNOHEP [Suspect]
     Active Substance: TINZAPARIN SODIUM
     Indication: FIBRIN D DIMER INCREASED
     Dosage: 1 DF
     Route: 058
     Dates: start: 20201008
  9. FUROSEMIDE. [Suspect]
     Active Substance: FUROSEMIDE
     Dosage: UNK
     Route: 042
     Dates: start: 20201013

REACTIONS (3)
  - Rash pruritic [Not Recovered/Not Resolved]
  - Staphylococcal bacteraemia [Unknown]
  - Off label use [Unknown]

NARRATIVE: CASE EVENT DATE: 20201009
